FAERS Safety Report 4311079-X (Version None)
Quarter: 2004Q1

REPORT INFORMATION
  Report Type: 
  Country: None (occurrence: None)
  Receive Date: 20040302
  Receipt Date: 20040223
  Transmission Date: 20041129
  Serious: Yes (Death, Hospitalization)
  Sender: FDA-Public Use
  Company Number: NSADSS2003021671

PATIENT
  Age: 81 Year
  Sex: Female

DRUGS (7)
  1. REMICADE [Suspect]
     Indication: RHEUMATOID ARTHRITIS
     Dosage: INTRAVENOUS DRIP
     Route: 041
     Dates: start: 20021227, end: 20021227
  2. GLUCOSAMINE (GLUCOSAMINE) [Concomitant]
  3. REMERON [Concomitant]
  4. PROZAC [Concomitant]
  5. FOLATE (FOLATE SODIUM) [Concomitant]
  6. PREDNISONE [Concomitant]
  7. DOCUSATE SODIUM (DOCUSATE SODIUM) [Concomitant]

REACTIONS (4)
  - BLOOD PRESSURE INCREASED [None]
  - HYPOTENSION [None]
  - PNEUMONIA [None]
  - WEIGHT DECREASED [None]
